FAERS Safety Report 20643390 (Version 1)
Quarter: 2022Q1

REPORT INFORMATION
  Report Type: Spontaneous
  Country: US (occurrence: None)
  Receive Date: 20220325
  Receipt Date: 20220325
  Transmission Date: 20220423
  Serious: Yes (Hospitalization)
  Sender: FDA-Public Use
  Company Number: None

PATIENT
  Age: 73 Year
  Sex: Male
  Weight: 58.51 kg

DRUGS (8)
  1. ERLEADA [Suspect]
     Active Substance: APALUTAMIDE
     Indication: Prostate cancer
     Dosage: FREQUENCY : DAILY;?
     Route: 048
  2. CALCIUM ACETATE [Concomitant]
     Active Substance: CALCIUM ACETATE
  3. ELIGARD [Concomitant]
     Active Substance: LEUPROLIDE ACETATE
  4. IRON [Concomitant]
     Active Substance: IRON
  5. IBUPROFEN [Concomitant]
     Active Substance: IBUPROFEN
  6. VITAMIN B12 [Concomitant]
     Active Substance: CYANOCOBALAMIN
  7. VITAMIN D3 [Concomitant]
     Active Substance: CHOLECALCIFEROL
  8. ZOLEDRONIC ACID [Concomitant]
     Active Substance: ZOLEDRONIC ACID

REACTIONS (2)
  - Haemoglobin decreased [None]
  - Cerebral haemorrhage [None]

NARRATIVE: CASE EVENT DATE: 20220314
